FAERS Safety Report 8082252-2 (Version None)
Quarter: 2012Q1

REPORT INFORMATION
  Report Type: 
  Country: None (occurrence: None)
  Receive Date: 20120127
  Receipt Date: 20110215
  Transmission Date: 20120608
  Serious: No
  Sender: FDA-Public Use
  Company Number: US-ABBOTT-11P-163-0705403-00

PATIENT
  Age: 60 Year
  Sex: Female

DRUGS (18)
  1. FUROSEMIDE [Concomitant]
     Indication: FLUID RETENTION
  2. ASPIRIN [Concomitant]
     Indication: PRODUCT USED FOR UNKNOWN INDICATION
  3. METHOTREXATE [Concomitant]
     Indication: PRODUCT USED FOR UNKNOWN INDICATION
     Dosage: 10 TABS WEEKLY
  4. SERTRALINE HYDROCHLORIDE [Concomitant]
     Indication: ANXIETY
  5. CARVEDILOL [Concomitant]
     Indication: HYPERTENSION
  6. CLONAZEPAM [Concomitant]
     Indication: INSOMNIA
     Dosage: AT BEDTIME
  7. ISOSORBID MONONITRATE [Concomitant]
     Indication: CHEST PAIN
  8. HUMIRA [Suspect]
     Indication: RHEUMATOID ARTHRITIS
  9. FLONASE [Concomitant]
     Indication: HYPERSENSITIVITY
     Dosage: 2 SPRAYS IN EACH NOSTRIL DAILY
     Route: 045
  10. FUROSEMIDE [Concomitant]
     Indication: SWELLING
  11. SINGULAIR [Concomitant]
     Indication: ASTHMA
  12. ENALAPRIL [Concomitant]
     Indication: HYPERTENSION
     Dosage: 2 TABS IN AM
  13. SIMVASTATIN [Concomitant]
     Indication: BLOOD CHOLESTEROL INCREASED
     Dosage: AT BEDTIME
  14. SIMVASTATIN [Concomitant]
     Indication: BLOOD TRIGLYCERIDES INCREASED
  15. ADVAIR DISKUS 100/50 [Concomitant]
     Indication: ASTHMA
  16. LIPITOR [Concomitant]
     Indication: BLOOD CHOLESTEROL INCREASED
     Dosage: AT BEDTIME
  17. GLIPIZIDE [Concomitant]
     Indication: DIABETES MELLITUS
  18. FISH OIL [Concomitant]
     Indication: PRODUCT USED FOR UNKNOWN INDICATION

REACTIONS (2)
  - RHEUMATOID ARTHRITIS [None]
  - DRUG DOSE OMISSION [None]
